FAERS Safety Report 8530340 (Version 4)
Quarter: 2012Q4

REPORT INFORMATION
  Report Type: 
  Country: CA (occurrence: CA)
  Receive Date: 20120425
  Receipt Date: 20120828
  Transmission Date: 20130627
  Serious: Yes (Hospitalization, Other)
  Sender: FDA-Public Use
  Company Number: PHHY2012CA031561

PATIENT
  Age: 72 None
  Sex: Male

DRUGS (3)
  1. DESFERAL [Suspect]
     Indication: MYELODYSPLASTIC SYNDROME
     Dosage: UNK
     Dates: start: 2006
  2. DESFERAL [Suspect]
     Dosage: UNK
     Route: 048
     Dates: start: 2010
  3. EXJADE [Suspect]
     Indication: MYELODYSPLASTIC SYNDROME
     Dosage: UNK
     Route: 048

REACTIONS (11)
  - Terminal state [Unknown]
  - Sepsis [Unknown]
  - Cardiac failure [Unknown]
  - Hepatic failure [Unknown]
  - Encephalopathy [Unknown]
  - Oedema peripheral [Unknown]
  - Drug intolerance [Unknown]
  - Nausea [Unknown]
  - Injection site pain [Unknown]
  - Drug ineffective [Unknown]
  - Product quality issue [None]
